FAERS Safety Report 9400304 (Version 1)
Quarter: 2013Q3

REPORT INFORMATION
  Report Type: Spontaneous
  Country: US (occurrence: None)
  Receive Date: 20130705
  Receipt Date: 20130705
  Transmission Date: 20140515
  Serious: Yes (Death)
  Sender: FDA-Public Use
  Company Number: ACO_35854_2013

PATIENT
  Age: 43 Year
  Sex: Female
  Weight: 56.7 kg

DRUGS (5)
  1. AMPYRA (DALFAMPRIDINE) TABLET, 10 MG [Suspect]
     Indication: MULTIPLE SCLEROSIS
     Route: 048
     Dates: start: 20100706, end: 20130416
  2. CYMBALTA (DULOXETINE HYDROCHLORIDE) [Suspect]
     Route: 048
  3. BACLOFEN (BACLOFEN) [Concomitant]
  4. MAGNESIUM (MAGNESIUM) [Concomitant]
  5. ARMODAFINIL [Concomitant]

REACTIONS (18)
  - Red cell distribution width decreased [None]
  - Monocyte percentage increased [None]
  - Basophil percentage increased [None]
  - Blood urea nitrogen/creatinine ratio increased [None]
  - Glomerular filtration rate increased [None]
  - Fatigue [None]
  - Movement disorder [None]
  - Pain [None]
  - Swelling [None]
  - Sinus disorder [None]
  - Sinusitis [None]
  - Gait disturbance [None]
  - Upper respiratory tract infection [None]
  - Sleep disorder [None]
  - Anxiety [None]
  - Weight increased [None]
  - Fluid retention [None]
  - Paraesthesia [None]
